FAERS Safety Report 10195268 (Version 2)
Quarter: 2014Q2

REPORT INFORMATION
  Report Type: Spontaneous
  Country: DE (occurrence: DE)
  Receive Date: 20140526
  Receipt Date: 20140526
  Transmission Date: 20141212
  Serious: Yes (Hospitalization, Other)
  Sender: FDA-Public Use
  Company Number: DE-BRISTOL-MYERS SQUIBB COMPANY-20651196

PATIENT
  Age: 74 Year
  Sex: Male
  Weight: 83 kg

DRUGS (4)
  1. ELIQUIS [Suspect]
     Indication: ATRIAL FIBRILLATION
     Dosage: TOTAL DOSE:10MG/DAY
     Route: 048
     Dates: start: 20140218, end: 201403
  2. SIMVAHEXAL [Concomitant]
     Indication: CORONARY ARTERY DISEASE
     Route: 048
  3. METFORMIN [Concomitant]
     Indication: TYPE 2 DIABETES MELLITUS
     Dosage: DOSAGE:1000, 0.5 DOSING FORM EVERY DAY
  4. METOHEXAL [Concomitant]
     Indication: CORONARY ARTERY DISEASE
     Dosage: DOSAGE:47.5,2 DOSING FORMS EVERY DAY
     Route: 048

REACTIONS (3)
  - Portal vein thrombosis [Recovering/Resolving]
  - Transaminases increased [Recovering/Resolving]
  - Pneumonia [Unknown]
